FAERS Safety Report 23433389 (Version 1)
Quarter: 2024Q1

REPORT INFORMATION
  Report Type: Spontaneous
  Country: US (occurrence: US)
  Receive Date: 20240123
  Receipt Date: 20240123
  Transmission Date: 20240410
  Serious: Yes (Other)
  Sender: FDA-Public Use
  Company Number: US-TEVA-VS-3147623

PATIENT
  Age: 25 Year

DRUGS (2)
  1. EVEROLIMUS [Suspect]
     Active Substance: EVEROLIMUS
     Indication: Neurofibromatosis
     Route: 065
  2. SELUMETINIB [Suspect]
     Active Substance: SELUMETINIB
     Indication: Neurofibromatosis
     Route: 065

REACTIONS (5)
  - Stomatitis [Unknown]
  - Fatigue [Unknown]
  - Rash maculo-papular [Unknown]
  - Off label use [Unknown]
  - Rash [Unknown]
